FAERS Safety Report 9537656 (Version 2)
Quarter: 2013Q4

REPORT INFORMATION
  Report Type: Spontaneous
  Country: JP (occurrence: JP)
  Receive Date: 20130919
  Receipt Date: 20131009
  Transmission Date: 20140711
  Serious: Yes (Other)
  Sender: FDA-Public Use
  Company Number: JP-PFIZER INC-2013269821

PATIENT
  Age: 50 Year
  Sex: Female

DRUGS (2)
  1. CELECOX [Suspect]
     Indication: MUSCULOSKELETAL PAIN
     Dosage: 100 MG, 2X/DAY
     Route: 048
  2. MYONAL [Concomitant]
     Dosage: UNK
     Route: 048

REACTIONS (2)
  - Gastritis atrophic [Unknown]
  - Intentional drug misuse [Not Recovered/Not Resolved]
